FAERS Safety Report 8256819-2 (Version None)
Quarter: 2012Q2

REPORT INFORMATION
  Report Type: 
  Country: None (occurrence: None)
  Receive Date: 20120403
  Receipt Date: 20120329
  Transmission Date: 20120825
  Serious: Yes (Other)
  Sender: FDA-Public Use
  Company Number: PHEH2012US001637

PATIENT
  Sex: Female
  Weight: 173 kg

DRUGS (7)
  1. CRESTOR [Concomitant]
     Indication: HYPERLIPIDAEMIA
     Dosage: UNK UKN, QD
  2. AMITRIPTYLINE HCL [Concomitant]
     Dosage: UNK UKN, QD
     Route: 048
  3. LYRICA [Concomitant]
     Dosage: 50 MG, QD
     Route: 048
  4. RECLAST [Suspect]
     Indication: OSTEOPOROSIS
     Route: 042
     Dates: start: 20111114
  5. SYNTHROID [Concomitant]
     Indication: BASEDOW'S DISEASE
     Dosage: UNK UKN, QD
     Route: 048
  6. CALCIUM CARBONATE [Concomitant]
     Dosage: UNK UKN, QD
     Route: 048
  7. ASPIRIN [Concomitant]
     Dosage: UNK UKN, QD
     Route: 048

REACTIONS (6)
  - VISUAL ACUITY REDUCED [None]
  - EYE PAIN [None]
  - VISION BLURRED [None]
  - EYE INFECTION [None]
  - BLINDNESS UNILATERAL [None]
  - IRITIS [None]
